FAERS Safety Report 7831730-7 (Version None)
Quarter: 2011Q4

REPORT INFORMATION
  Report Type: 
  Country: None (occurrence: None)
  Receive Date: 20111019
  Receipt Date: 20111011
  Transmission Date: 20120403
  Serious: Yes (Life-Threatening)
  Sender: FDA-Public Use
  Company Number: 1075594

PATIENT
  Sex: Male

DRUGS (6)
  1. ERBITUX [Concomitant]
  2. IRINOTECAN HCL [Suspect]
     Indication: COLON CANCER
     Dosage: 150.9 MG; CYCLIC, UNKNOWN. INTRAVENOUS
     Route: 042
     Dates: start: 20101227, end: 20110207
  3. LEVOLEUCOVORIN CALCIUM [Concomitant]
  4. ALLOPURINOL [Concomitant]
  5. (SUGUAN) [Concomitant]
  6. FLUOROURACIL [Concomitant]

REACTIONS (10)
  - SKIN DISCOLOURATION [None]
  - HYPOVOLAEMIC SHOCK [None]
  - DEHYDRATION [None]
  - ENTERITIS [None]
  - RENAL FAILURE ACUTE [None]
  - ESCHERICHIA URINARY TRACT INFECTION [None]
  - SCRATCH [None]
  - HYPOTENSION [None]
  - BLOOD POTASSIUM DECREASED [None]
  - DIARRHOEA [None]
